FAERS Safety Report 6313116-X (Version None)
Quarter: 2009Q3

REPORT INFORMATION
  Report Type: 
  Country: None (occurrence: None)
  Receive Date: 20090818
  Receipt Date: 20090806
  Transmission Date: 20100115
  Serious: Yes (Other)
  Sender: FDA-Public Use
  Company Number: JP-PFIZER INC-2009253274

PATIENT

DRUGS (1)
  1. XALATAN [Suspect]
     Route: 047

REACTIONS (2)
  - VISION BLURRED [None]
  - VISUAL FIELD DEFECT [None]
